FAERS Safety Report 4406514-2 (Version None)
Quarter: 2004Q3

REPORT INFORMATION
  Report Type: 
  Country: None (occurrence: None)
  Receive Date: 20040716
  Receipt Date: 20040708
  Transmission Date: 20050211
  Serious: Yes (Hospitalization)
  Sender: FDA-Public Use
  Company Number: K200400998

PATIENT
  Age: 78 Year
  Sex: Male

DRUGS (2)
  1. ALTACE [Suspect]
     Indication: HYPERTENSION
     Dosage: ORAL
     Route: 048
  2. ALLOPURINOL [Suspect]

REACTIONS (5)
  - CONDITION AGGRAVATED [None]
  - GAIT DISTURBANCE [None]
  - HYPOKINESIA [None]
  - MUSCULAR WEAKNESS [None]
  - MYALGIA [None]
